FAERS Safety Report 5637714-1 (Version None)
Quarter: 2008Q1

REPORT INFORMATION
  Report Type: 
  Country: None (occurrence: None)
  Receive Date: 20080220
  Receipt Date: 20080211
  Transmission Date: 20080703
  Serious: Yes (Hospitalization)
  Sender: FDA-Public Use
  Company Number: 2008AL000814

PATIENT
  Age: 78 Year
  Sex: Male

DRUGS (2)
  1. IBUPROFEN [Suspect]
     Indication: ARTHRALGIA
     Dosage: PO
     Route: 048
  2. BISOPROLOL FUMARATE [Concomitant]

REACTIONS (7)
  - CONFUSIONAL STATE [None]
  - DISORIENTATION [None]
  - DRUG HYPERSENSITIVITY [None]
  - LETHARGY [None]
  - MENINGITIS ASEPTIC [None]
  - PYREXIA [None]
  - SOMNOLENCE [None]
